FAERS Safety Report 6813634-1 (Version None)
Quarter: 2010Q3

REPORT INFORMATION
  Report Type: 
  Country: None (occurrence: None)
  Receive Date: 20100701
  Receipt Date: 20100618
  Transmission Date: 20110219
  Serious: Yes (Hospitalization)
  Sender: FDA-Public Use
  Company Number: US-ROCHE-635394

PATIENT
  Sex: Male

DRUGS (16)
  1. PEGINTERFERON ALFA-2A [Suspect]
     Indication: HEPATITIS C
     Route: 058
     Dates: start: 20081217, end: 20090513
  2. RIBAVIRIN [Suspect]
     Indication: HEPATITIS C
     Route: 048
     Dates: start: 20081217, end: 20090515
  3. VX-950 [Suspect]
     Indication: HEPATITIS C
     Route: 048
     Dates: start: 20081217, end: 20090203
  4. GLUCOPHAGE [Concomitant]
     Indication: DIABETES MELLITUS
     Dates: start: 19960101
  5. GLIPIZIDE [Concomitant]
     Indication: DIABETES MELLITUS
     Dates: start: 19960101
  6. VITAMIN B [Concomitant]
     Dates: start: 19950101
  7. VITAMIN B-12 [Concomitant]
     Dates: start: 20030101
  8. PRILOSEC [Concomitant]
     Dates: start: 20030101
  9. LEVSIN [Concomitant]
     Dates: start: 20060101
  10. QUININE [Concomitant]
     Dates: start: 20020101
  11. TYLENOL [Concomitant]
     Dates: start: 20081223
  12. ATARAX [Concomitant]
     Indication: PRURITUS
     Dates: start: 20090128
  13. TRIAMCINOLONE [Concomitant]
     Indication: RASH
     Dates: start: 20090203
  14. PHENERGAN [Concomitant]
     Indication: NAUSEA
     Dates: start: 20090312
  15. REMERON [Concomitant]
     Indication: DEPRESSION
     Dosage: OTHER INDICATION: INSOMNIA
     Dates: start: 20090408
  16. VISTARIL [Concomitant]
     Indication: NAUSEA
     Dates: start: 20090408

REACTIONS (13)
  - ATRIOVENTRICULAR BLOCK FIRST DEGREE [None]
  - DEEP VEIN THROMBOSIS [None]
  - FATIGUE [None]
  - HEPATIC CIRRHOSIS [None]
  - HEPATIC LESION [None]
  - HEPATIC NEOPLASM [None]
  - HEPATIC STEATOSIS [None]
  - NAUSEA [None]
  - PULMONARY EMBOLISM [None]
  - PULMONARY HYPERTENSION [None]
  - RASH [None]
  - RECTAL ADENOMA [None]
  - WEIGHT DECREASED [None]
